FAERS Safety Report 11627928 (Version 1)
Quarter: 2015Q4

REPORT INFORMATION
  Report Type: Spontaneous
  Country: US (occurrence: None)
  Receive Date: 20151013
  Receipt Date: 20151013
  Transmission Date: 20160304
  Serious: No
  Sender: FDA-Public Use
  Company Number: None

PATIENT
  Age: 55 Year
  Sex: Male
  Weight: 138.35 kg

DRUGS (1)
  1. INVOKANA [Suspect]
     Active Substance: CANAGLIFLOZIN
     Indication: DIABETES MELLITUS INADEQUATE CONTROL
     Dosage: 1 PILL PER DAY WITH 4 MG GLIM
     Route: 048
     Dates: start: 20150926, end: 20151009

REACTIONS (6)
  - Fungal infection [None]
  - Penile pain [None]
  - Weight decreased [None]
  - Dyspnoea [None]
  - Penile swelling [None]
  - Abdominal pain upper [None]

NARRATIVE: CASE EVENT DATE: 20151009
